FAERS Safety Report 23942708 (Version 1)
Quarter: 2024Q2

REPORT INFORMATION
  Report Type: Spontaneous
  Country: US (occurrence: None)
  Receive Date: 20240605
  Receipt Date: 20240605
  Transmission Date: 20240716
  Serious: No
  Sender: FDA-Public Use
  Company Number: None

PATIENT

DRUGS (2)
  1. LITHIUM [Suspect]
     Active Substance: LITHIUM
  2. FISH OIL [Suspect]
     Active Substance: FISH OIL

REACTIONS (4)
  - Product commingling [None]
  - Intercepted product dispensing error [None]
  - Liquid product physical issue [None]
  - Product packaging issue [None]
